FAERS Safety Report 11198429 (Version 1)
Quarter: 2015Q2

REPORT INFORMATION
  Report Type: Spontaneous
  Country: FR (occurrence: FR)
  Receive Date: 20150618
  Receipt Date: 20150618
  Transmission Date: 20150821
  Serious: Yes (Death, Hospitalization, Other)
  Sender: FDA-Public Use
  Company Number: FR-ACCORD-031515

PATIENT
  Age: 63 Year
  Sex: Female

DRUGS (4)
  1. NOREPINEPHRINE [Concomitant]
     Active Substance: NOREPINEPHRINE\NOREPINEPHRINE BITARTRATE
  2. OXALIPLATIN. [Suspect]
     Active Substance: OXALIPLATIN
     Indication: PRODUCT USED FOR UNKNOWN INDICATION
     Dosage: GEMOX
     Route: 042
     Dates: start: 20140711, end: 20140919
  3. GEMCITABINE/GEMCITABINE HYDROCHLORIDE [Suspect]
     Active Substance: GEMCITABINE\GEMCITABINE HYDROCHLORIDE
     Indication: PRODUCT USED FOR UNKNOWN INDICATION
     Dosage: GEMOX
     Dates: start: 20140711, end: 20140919
  4. OXALIPLATIN ACCORD [Suspect]
     Active Substance: OXALIPLATIN
     Indication: OVARIAN CANCER
     Dosage: HIPEC CHEMOTHERAPY
     Route: 042
     Dates: start: 20141118, end: 20141118

REACTIONS (8)
  - Anaphylactic shock [Recovered/Resolved]
  - Neuropathy peripheral [Unknown]
  - Cerebral haemorrhage [Unknown]
  - Off label use [Unknown]
  - Hypothermia [Unknown]
  - Fatigue [Unknown]
  - Pneumonia [Unknown]
  - Pulmonary fibrosis [Unknown]

NARRATIVE: CASE EVENT DATE: 20141118
